FAERS Safety Report 21562220 (Version 1)
Quarter: 2022Q4

REPORT INFORMATION
  Report Type: Spontaneous
  Country: US (occurrence: None)
  Receive Date: 20221105
  Receipt Date: 20221105
  Transmission Date: 20230113
  Serious: Yes (Hospitalization)
  Sender: FDA-Public Use
  Company Number: None

PATIENT
  Sex: Female

DRUGS (5)
  1. RETEVMO [Suspect]
     Active Substance: SELPERCATINIB
     Indication: Thyroid cancer
     Dosage: 80 MG ORAL??TAKE 2 CAPSULES (160MG) BY MOUTH TWICE DAILY
     Route: 048
     Dates: start: 20220915
  2. LEVOTHYROXIN TAB [Concomitant]
  3. LOPERAMIDE TAB [Concomitant]
  4. LORATADINE TAB [Concomitant]
  5. VITAMIN D CAP [Concomitant]

REACTIONS (3)
  - Headache [None]
  - Vomiting [None]
  - Therapy interrupted [None]
